FAERS Safety Report 4657947-0 (Version None)
Quarter: 2005Q2

REPORT INFORMATION
  Report Type: 
  Country: None (occurrence: None)
  Receive Date: 20050510
  Receipt Date: 20040927
  Transmission Date: 20051028
  Serious: Yes (Other)
  Sender: FDA-Public Use
  Company Number: 2004GB02316

PATIENT
  Age: 72 Year
  Sex: Female
  Weight: 81.5 kg

DRUGS (9)
  1. CRESTOR [Suspect]
     Indication: LIPIDS INCREASED
     Route: 048
     Dates: start: 20031126, end: 20040823
  2. ASPIRIN [Concomitant]
     Indication: MYOCARDIAL ISCHAEMIA
     Dosage: ONCE DAILY
     Route: 048
  3. FRUSEMIDE [Concomitant]
     Dosage: 1/2 TABLETS ALTERNATE DAYS
     Route: 048
  4. SPIRONOLACTONE [Concomitant]
     Route: 048
  5. MULTI-VITAMINS [Concomitant]
     Indication: NAIL DISORDER
     Route: 048
     Dates: start: 20040809
  6. SALBUTAMOL [Concomitant]
     Route: 065
  7. BECONASE [Concomitant]
     Dosage: 100 MCG
     Route: 055
  8. EVENING PRIMROSE OIL [Concomitant]
  9. COD-LIVER OIL [Concomitant]

REACTIONS (7)
  - CEREBROVASCULAR ACCIDENT [None]
  - FACIAL PARESIS [None]
  - FLUSHING [None]
  - MALAISE [None]
  - PAIN IN EXTREMITY [None]
  - RESTLESSNESS [None]
  - SLEEP DISORDER [None]
